FAERS Safety Report 16420471 (Version 1)
Quarter: 2019Q2

REPORT INFORMATION
  Report Type: Spontaneous
  Country: US (occurrence: US)
  Receive Date: 20190612
  Receipt Date: 20190612
  Transmission Date: 20190711
  Serious: No
  Sender: FDA-Public Use
  Company Number: US-PFIZER INC-2019250189

PATIENT
  Age: 83 Year
  Sex: Female
  Weight: 82.54 kg

DRUGS (12)
  1. STARLIX [Suspect]
     Active Substance: NATEGLINIDE
     Dosage: UNK
  2. TRAMADOL. [Suspect]
     Active Substance: TRAMADOL
     Dosage: UNK
  3. LEVOFLOXACIN. [Suspect]
     Active Substance: LEVOFLOXACIN
     Dosage: UNK
  4. SILVER NITRATE. [Suspect]
     Active Substance: SILVER NITRATE
     Dosage: UNK
  5. NATEGLINIDE. [Suspect]
     Active Substance: NATEGLINIDE
     Dosage: UNK
  6. SIMVASTATIN. [Suspect]
     Active Substance: SIMVASTATIN
     Dosage: UNK
  7. ATORVASTATIN CALCIUM. [Suspect]
     Active Substance: ATORVASTATIN CALCIUM
     Dosage: UNK
  8. GABAPENTIN. [Suspect]
     Active Substance: GABAPENTIN
     Dosage: UNK
  9. PRAVASTATIN. [Suspect]
     Active Substance: PRAVASTATIN
     Dosage: UNK
  10. VENLAFAXINE HCL [Suspect]
     Active Substance: VENLAFAXINE HYDROCHLORIDE
     Dosage: UNK
  11. ULTRAM ER [Suspect]
     Active Substance: TRAMADOL HYDROCHLORIDE
     Dosage: UNK
  12. METFORMIN [Suspect]
     Active Substance: METFORMIN HYDROCHLORIDE
     Dosage: UNK

REACTIONS (1)
  - Drug hypersensitivity [Unknown]
